FAERS Safety Report 25246189 (Version 1)
Quarter: 2025Q2

REPORT INFORMATION
  Report Type: Spontaneous
  Country: AR (occurrence: AR)
  Receive Date: 20250428
  Receipt Date: 20250428
  Transmission Date: 20250716
  Serious: Yes (Hospitalization, Other)
  Sender: Haleon PLC
  Company Number: AR-002147023-PHHY2019AR207543

PATIENT
  Age: 64 Year
  Sex: Male

DRUGS (14)
  1. DICLOFENAC [Suspect]
     Active Substance: DICLOFENAC
     Indication: Pain
  2. Omeprasec [Concomitant]
     Indication: Product used for unknown indication
  3. TASIGNA [Suspect]
     Active Substance: NILOTINIB
     Indication: Chronic myeloid leukaemia
     Dosage: 400 MG, BID
     Dates: end: 20190701
  4. TASIGNA [Suspect]
     Active Substance: NILOTINIB
     Dosage: 400 MG, BID
     Route: 048
     Dates: start: 20210801
  5. TASIGNA [Suspect]
     Active Substance: NILOTINIB
  6. TASIGNA [Suspect]
     Active Substance: NILOTINIB
     Dosage: 800 MG, QD
  7. TASIGNA [Suspect]
     Active Substance: NILOTINIB
     Dosage: 800 MG, BID
     Route: 048
     Dates: start: 20180801
  8. ENALAPRIL [Concomitant]
     Active Substance: ENALAPRIL
     Indication: Product used for unknown indication
  9. Medicol [Concomitant]
     Indication: Product used for unknown indication
  10. ATORVASTATIN [Concomitant]
     Active Substance: ATORVASTATIN
     Indication: Product used for unknown indication
  11. CLOPIDOGREL [Concomitant]
     Active Substance: CLOPIDOGREL BISULFATE
     Indication: Product used for unknown indication
  12. Medocor [Concomitant]
     Indication: Product used for unknown indication
  13. ATENOLOL [Concomitant]
     Active Substance: ATENOLOL
     Indication: Product used for unknown indication
  14. ASPIRIN [Concomitant]
     Active Substance: ASPIRIN
     Indication: Product used for unknown indication

REACTIONS (41)
  - Myocardial infarction [Unknown]
  - Rib fracture [Recovering/Resolving]
  - Headache [Recovered/Resolved]
  - Product dose omission issue [Unknown]
  - Lymphadenopathy [Recovering/Resolving]
  - Pyrexia [Recovering/Resolving]
  - Incorrect route of product administration [Unknown]
  - Musculoskeletal chest pain [Recovering/Resolving]
  - Malaise [Unknown]
  - Road traffic accident [Recovering/Resolving]
  - Weight decreased [Recovering/Resolving]
  - Gait disturbance [Unknown]
  - Nausea [Not Recovered/Not Resolved]
  - Neck pain [Recovering/Resolving]
  - Fatigue [Not Recovered/Not Resolved]
  - White blood cell count increased [Unknown]
  - Joint dislocation [Recovering/Resolving]
  - Blood triglycerides increased [Not Recovered/Not Resolved]
  - Abdominal pain upper [Unknown]
  - Platelet count decreased [Unknown]
  - Vasculitis [Unknown]
  - Blood cholesterol increased [Not Recovered/Not Resolved]
  - Feeling abnormal [Not Recovered/Not Resolved]
  - Dizziness [Recovering/Resolving]
  - Pain [Recovering/Resolving]
  - Splenomegaly [Unknown]
  - Dyspnoea [Recovering/Resolving]
  - Musculoskeletal stiffness [Recovering/Resolving]
  - Headache [Not Recovered/Not Resolved]
  - Bone pain [Unknown]
  - Incorrect dosage administered [Unknown]
  - Myalgia [Unknown]
  - Paraesthesia [Unknown]
  - Pneumonia [Unknown]
  - Diarrhoea [Unknown]
  - Chronic myeloid leukaemia recurrent [Unknown]
  - Depressed mood [Recovering/Resolving]
  - Infarction [Unknown]
  - Nasopharyngitis [Not Recovered/Not Resolved]
  - COVID-19 [Unknown]
  - Chills [Not Recovered/Not Resolved]

NARRATIVE: CASE EVENT DATE: 20200701
